FAERS Safety Report 8248231-7 (Version None)
Quarter: 2012Q1

REPORT INFORMATION
  Report Type: 
  Country: None (occurrence: None)
  Receive Date: 20120330
  Receipt Date: 20120323
  Transmission Date: 20120608
  Serious: Yes (Other)
  Sender: FDA-Public Use
  Company Number: GB-PFIZER INC-2012076058

PATIENT
  Age: 76 Year
  Sex: Female

DRUGS (7)
  1. PAMIDRONATE DISODIUM [Suspect]
     Dosage: 30 MG, EVERY 3 MONTHS
     Route: 042
  2. CALCIUM [Concomitant]
     Dosage: 1200 MG/DAY
  3. FOLIC ACID [Concomitant]
     Dosage: 10 MG, WEEKLY
  4. VITAMIN D [Concomitant]
     Dosage: 800 UNITS/DAY
  5. RABEPRAZOLE [Concomitant]
     Dosage: 20 MG/DAY
  6. METHOTREXATE [Concomitant]
     Dosage: 15 MG, WEEKLY
     Route: 042
  7. PREDNISOLONE [Concomitant]
     Dosage: 5 MG/DAY

REACTIONS (2)
  - FEMUR FRACTURE [None]
  - TIBIA FRACTURE [None]
